FAERS Safety Report 10199531 (Version 1)
Quarter: 2014Q2

REPORT INFORMATION
  Report Type: Spontaneous
  Country: DE (occurrence: DE)
  Receive Date: 20140527
  Receipt Date: 20140527
  Transmission Date: 20141212
  Serious: Yes (Death)
  Sender: FDA-Public Use
  Company Number: DE-ACTAVIS-2014-10481

PATIENT
  Age: 77 Year
  Sex: Female

DRUGS (9)
  1. DICLOFENAC (UNKNOWN) [Suspect]
     Indication: PAIN
     Dosage: 75 MG, UNK
     Route: 048
     Dates: start: 201403
  2. PRADAXA [Suspect]
     Indication: CEREBROVASCULAR ACCIDENT
     Dosage: UNK
     Route: 048
     Dates: start: 201312
  3. NEXIUM                             /01479302/ [Concomitant]
     Indication: GASTRITIS
     Dosage: 40 MG, DAILY
     Route: 048
  4. DELIX                              /00885601/ [Concomitant]
     Indication: CARDIAC FAILURE
     Dosage: 5 MG X 2, UNK
     Route: 048
  5. TOREM                              /01036501/ [Concomitant]
     Indication: CARDIAC FAILURE
     Dosage: 10 MG X1, UNK
     Route: 048
  6. BELOC                              /00376903/ [Concomitant]
     Indication: CARDIAC FAILURE
     Dosage: 47.5 MG X 2, UNK
     Route: 048
  7. SPIRONOLACTON [Concomitant]
     Indication: CARDIAC FAILURE
     Dosage: 50 MG, UNK
     Route: 048
  8. FOLSAN [Concomitant]
     Indication: FOLATE DEFICIENCY
     Dosage: 5 MG, UNK
     Route: 048
  9. CIPRAMIL                           /00582602/ [Concomitant]
     Indication: DEPRESSION
     Dosage: 20 MG, UNK
     Route: 048

REACTIONS (1)
  - Upper gastrointestinal haemorrhage [Fatal]
